FAERS Safety Report 5572324-6 (Version None)
Quarter: 2007Q4

REPORT INFORMATION
  Report Type: 
  Country: None (occurrence: None)
  Receive Date: 20071219
  Receipt Date: 20071205
  Transmission Date: 20080405
  Serious: Yes (Hospitalization)
  Sender: FDA-Public Use
  Company Number: FR-1164641

PATIENT
  Age: 70 Year
  Sex: Female

DRUGS (7)
  1. TOBRADEX [Suspect]
     Indication: CATARACT OPERATION
     Dosage: 1 GTT TID IN OD, OPHTHALMIC
     Route: 047
     Dates: start: 20071029, end: 20071104
  2. VITAMIN K (VITAMIN K NOS) [Concomitant]
  3. SPIRONOLACTONE [Concomitant]
  4. NEXIUM [Concomitant]
  5. LACTULOSE [Concomitant]
  6. AMARYL [Concomitant]
  7. LEVOTHYROXINE SODIUM [Concomitant]

REACTIONS (1)
  - ENCEPHALOPATHY [None]
